FAERS Safety Report 4978718-1 (Version None)
Quarter: 2006Q2

REPORT INFORMATION
  Report Type: 
  Country: None (occurrence: None)
  Receive Date: 20060414
  Receipt Date: 20060405
  Transmission Date: 20061013
  Serious: Yes (Hospitalization)
  Sender: FDA-Public Use
  Company Number: 2006-02-0463

PATIENT
  Age: 73 Year
  Sex: Female

DRUGS (2)
  1. ALBUTEROL SULFATE AUTOHALER [Suspect]
     Indication: ASTHMA
     Dosage: ORAL AER INH
     Route: 055
  2. ADVAIR DISKUS 100/50 [Concomitant]

REACTIONS (4)
  - DEVICE FAILURE [None]
  - DYSPNOEA [None]
  - LUNG DISORDER [None]
  - PAIN [None]
